FAERS Safety Report 9494204 (Version 2)
Quarter: 2013Q3

REPORT INFORMATION
  Report Type: Spontaneous
  Country: DE (occurrence: DE)
  Receive Date: 20130903
  Receipt Date: 20130906
  Transmission Date: 20140515
  Serious: Yes (Congenital Anomaly)
  Sender: FDA-Public Use
  Company Number: DE-RANBAXY-2013RR-72411

PATIENT
  Age: 1 Day
  Sex: Male

DRUGS (1)
  1. METFORMIN [Suspect]
     Indication: POLYCYSTIC OVARIES
     Dosage: 500 MG, TID, 0.-16. GESTATIONAL WEEK
     Route: 064

REACTIONS (5)
  - Hypospadias [Recovered/Resolved with Sequelae]
  - Atrial septal defect [Unknown]
  - Developmental delay [Not Recovered/Not Resolved]
  - Adactyly [Not Recovered/Not Resolved]
  - Urethral valves [Recovered/Resolved with Sequelae]
